FAERS Safety Report 18847488 (Version 1)
Quarter: 2021Q1

REPORT INFORMATION
  Report Type: Report from Study
  Country: US (occurrence: US)
  Receive Date: 20210203
  Receipt Date: 20210203
  Transmission Date: 20210419
  Serious: No
  Sender: FDA-Public Use
  Company Number: US-EXELIXIS-CABO-20032584

PATIENT
  Sex: Male

DRUGS (3)
  1. CABOMETYX [Suspect]
     Active Substance: CABOZANTINIB S-MALATE
     Dosage: 20 MG
     Dates: end: 20200923
  2. CABOMETYX [Suspect]
     Active Substance: CABOZANTINIB S-MALATE
     Indication: RENAL CELL CARCINOMA
     Dosage: 60 MG
  3. CABOMETYX [Suspect]
     Active Substance: CABOZANTINIB S-MALATE
     Dosage: 40 MG, QD
     Dates: start: 20200826

REACTIONS (8)
  - Gait disturbance [Unknown]
  - Abdominal pain upper [Recovering/Resolving]
  - Pruritus [Unknown]
  - Dysphonia [Unknown]
  - Amnesia [Unknown]
  - Constipation [Unknown]
  - Fatigue [Unknown]
  - Hyperhidrosis [Unknown]
